FAERS Safety Report 5170560-4 (Version None)
Quarter: 2006Q4

REPORT INFORMATION
  Report Type: 
  Country: None (occurrence: None)
  Receive Date: 20061205
  Receipt Date: 20061123
  Transmission Date: 20070319
  Serious: Yes (Life-Threatening)
  Sender: FDA-Public Use
  Company Number: 150199ISR

PATIENT
  Age: 64 Year
  Sex: Male

DRUGS (1)
  1. METRONIDAZOLE [Suspect]
     Indication: GASTROENTERITIS
     Dosage: 400 MG
     Route: 048
     Dates: start: 20061025, end: 20061028

REACTIONS (1)
  - HYPOGLYCAEMIA [None]
